FAERS Safety Report 7791745-4 (Version None)
Quarter: 2011Q4

REPORT INFORMATION
  Report Type: 
  Country: None (occurrence: None)
  Receive Date: 20111003
  Receipt Date: 20110927
  Transmission Date: 20120403
  Serious: No
  Sender: FDA-Public Use
  Company Number: US-PFIZER INC-2011230063

PATIENT
  Sex: Female
  Weight: 48.98 kg

DRUGS (1)
  1. SUTENT [Suspect]
     Indication: RENAL CANCER
     Dosage: 50 MG, 1X/DAY, 4 WEEKS ON/2 WEEKS OFF
     Route: 048
     Dates: start: 20110909, end: 20110916

REACTIONS (4)
  - ABDOMINAL DISCOMFORT [None]
  - MOUTH ULCERATION [None]
  - FATIGUE [None]
  - DYSPEPSIA [None]
